FAERS Safety Report 9846268 (Version 1)
Quarter: 2014Q1

REPORT INFORMATION
  Report Type: Spontaneous
  Country: MX (occurrence: MX)
  Receive Date: 20140127
  Receipt Date: 20140127
  Transmission Date: 20141002
  Serious: Yes (Other)
  Sender: FDA-Public Use
  Company Number: PHHY2014MX008958

PATIENT
  Age: 11 Year
  Sex: Male
  Weight: 47 kg

DRUGS (4)
  1. TEGRETOL [Suspect]
     Indication: EPILEPSY
     Dosage: 3 DF (2G/100ML) DAILY
     Route: 048
     Dates: start: 200812, end: 20140110
  2. TEGRETOL 200 LC [Suspect]
     Indication: EPILEPSY
     Dosage: 200 MG, UNK
  3. TEGRETOL [Suspect]
     Indication: EPILEPSY
     Dosage: 2 TABLETS (UNKNOWN), DAILY
     Route: 048
     Dates: start: 20140110
  4. TRILEPTAL / GP 47680 / TRI 476B [Suspect]
     Indication: EPILEPSY
     Dosage: UNK UKN, UNK

REACTIONS (4)
  - Glucose tolerance impaired [Not Recovered/Not Resolved]
  - Convulsion [Recovered/Resolved]
  - Hepatic function abnormal [Not Recovered/Not Resolved]
  - Weight decreased [Recovered/Resolved]
